FAERS Safety Report 18171010 (Version 2)
Quarter: 2020Q3

REPORT INFORMATION
  Report Type: Report from Study
  Country: US (occurrence: US)
  Receive Date: 20200819
  Receipt Date: 20200911
  Transmission Date: 20201103
  Serious: No
  Sender: FDA-Public Use
  Company Number: NVSC2020US228305

PATIENT
  Sex: Female

DRUGS (2)
  1. COSENTYX [Suspect]
     Active Substance: SECUKINUMAB
     Indication: DERMATITIS ATOPIC
     Dosage: 150 MG, OTHER (WEEKS 0, 1, 2, 3, AND 4. THEN ONCE EVERY 4 WEEKS THEREAFTER)
     Route: 058
  2. COSENTYX [Suspect]
     Active Substance: SECUKINUMAB
     Indication: BLOOD TEST ABNORMAL

REACTIONS (2)
  - Rash [Unknown]
  - Product use in unapproved indication [Unknown]
